FAERS Safety Report 20655077 (Version 2)
Quarter: 2022Q2

REPORT INFORMATION
  Report Type: Spontaneous
  Country: US (occurrence: US)
  Receive Date: 20220330
  Receipt Date: 20220406
  Transmission Date: 20220721
  Serious: No
  Sender: FDA-Public Use
  Company Number: US-TAKEDA-2022TUS020438

PATIENT
  Age: 64 Year
  Sex: Female
  Weight: 49.66 kg

DRUGS (4)
  1. GATTEX [Suspect]
     Active Substance: TEDUGLUTIDE\WATER
     Indication: Short-bowel syndrome
     Dosage: 0.2 MILLILITER, QD
     Route: 058
     Dates: start: 20150321, end: 201505
  2. GATTEX [Suspect]
     Active Substance: TEDUGLUTIDE\WATER
     Indication: Short-bowel syndrome
     Dosage: 0.2 MILLILITER, QD
     Route: 058
     Dates: start: 20150321, end: 201505
  3. GATTEX [Suspect]
     Active Substance: TEDUGLUTIDE\WATER
     Indication: Short-bowel syndrome
     Dosage: 0.2 MILLILITER, QD
     Route: 058
     Dates: start: 20150321, end: 201505
  4. GATTEX [Suspect]
     Active Substance: TEDUGLUTIDE\WATER
     Indication: Short-bowel syndrome
     Dosage: 0.2 MILLILITER, QD
     Route: 058
     Dates: start: 20150321, end: 201505

REACTIONS (1)
  - Vertigo [Unknown]

NARRATIVE: CASE EVENT DATE: 20150301
